FAERS Safety Report 5813849-5 (Version None)
Quarter: 2008Q3

REPORT INFORMATION
  Report Type: 
  Country: None (occurrence: None)
  Receive Date: 20080714
  Receipt Date: 20080707
  Transmission Date: 20090109
  Serious: Yes (Other)
  Sender: FDA-Public Use
  Company Number: 2008017758

PATIENT
  Age: 60 Year
  Sex: Female

DRUGS (3)
  1. LISTERINE WHITENING PRE-BRUSH RINSE (NO ACTIVE INGREDIENT) [Suspect]
     Indication: DENTAL CARE
     Dosage: MOUTHFUL TWICE A DAY (2 IN 1 D), ORAL
     Route: 048
     Dates: start: 20080703, end: 20080704
  2. LISTERINE WHITENING QUICK DISSOLVING STRIPS (NO ACTIVE INGREDIENT) [Suspect]
     Indication: DENTAL CARE
     Dosage: 4 TIMES (MORNING AND NIGHT) (4 IN 1 D), ORAL
     Route: 048
     Dates: start: 20080703
  3. ZIAC [Concomitant]

REACTIONS (5)
  - BURNING SENSATION [None]
  - CHEILITIS [None]
  - LIP DISORDER [None]
  - LIP PAIN [None]
  - LIP SWELLING [None]
